FAERS Safety Report 21315675 (Version 1)
Quarter: 2022Q3

REPORT INFORMATION
  Report Type: Spontaneous
  Country: FR (occurrence: FR)
  Receive Date: 20220909
  Receipt Date: 20220909
  Transmission Date: 20221027
  Serious: Yes (Life-Threatening, Hospitalization)
  Sender: FDA-Public Use
  Company Number: None

PATIENT
  Age: 64 Year
  Sex: Male
  Weight: 70 kg

DRUGS (20)
  1. CILASTATIN SODIUM\IMIPENEM [Suspect]
     Active Substance: CILASTATIN SODIUM\IMIPENEM
     Indication: Febrile bone marrow aplasia
     Dosage: 3 GRAM, QD,1G* 3/DAY
     Route: 042
     Dates: start: 20220624, end: 20220702
  2. CELLCEPT [Suspect]
     Active Substance: MYCOPHENOLATE MOFETIL
     Indication: Prophylaxis against transplant rejection
     Dosage: 1000 MILLIGRAM, QD,500 MG*2/DAY 8 A.M. 8 P.M.
     Route: 048
     Dates: start: 20220526, end: 20220627
  3. FLUCONAZOLE [Suspect]
     Active Substance: FLUCONAZOLE
     Dosage: 400 MILLIGRAM, QD
     Route: 048
     Dates: start: 20220630, end: 20220707
  4. NEORAL [Suspect]
     Active Substance: CYCLOSPORINE
     Indication: Bone marrow transplant rejection
     Dosage: UNK UNK, QD
     Route: 048
     Dates: start: 20220702
  5. NEORAL [Suspect]
     Active Substance: CYCLOSPORINE
     Dosage: 240 MILLIGRAM, QD, 120 MG 8H 20 H
     Route: 048
     Dates: start: 20220620, end: 20220623
  6. METRONIDAZOLE [Suspect]
     Active Substance: METRONIDAZOLE
     Indication: Splenic infarction
     Dosage: 1500 MILLIGRAM, QD, 500 MG*3/DAY
     Route: 042
     Dates: start: 20220701, end: 20220704
  7. AMIKACIN [Suspect]
     Active Substance: AMIKACIN
     Dosage: 2000 MILLIGRAM, QD
     Route: 042
     Dates: start: 20220701, end: 20220702
  8. AMIKACIN [Suspect]
     Active Substance: AMIKACIN
     Dosage: 1000 MILLIGRAM
     Route: 042
     Dates: start: 20220704, end: 20220704
  9. AMIKACIN [Suspect]
     Active Substance: AMIKACIN
     Dosage: 1500 MILLIGRAM
     Route: 042
     Dates: start: 20220705, end: 20220706
  10. ZOVIRAX [Suspect]
     Active Substance: ACYCLOVIR
     Dosage: 500 MILLIGRAM, QD
     Route: 042
     Dates: start: 20220706, end: 20220710
  11. ZOVIRAX [Suspect]
     Active Substance: ACYCLOVIR
     Dosage: 500 MILLIGRAM, QD
     Route: 042
     Dates: start: 20220624, end: 20220630
  12. PIPERACILLIN SODIUM\TAZOBACTAM SODIUM [Suspect]
     Active Substance: PIPERACILLIN SODIUM\TAZOBACTAM SODIUM
     Indication: Febrile bone marrow aplasia
     Dosage: UNK
     Route: 042
     Dates: start: 20220614, end: 20220622
  13. PIPERACILLIN SODIUM\TAZOBACTAM SODIUM [Suspect]
     Active Substance: PIPERACILLIN SODIUM\TAZOBACTAM SODIUM
     Dosage: UNK
     Route: 042
     Dates: start: 20220608, end: 20220614
  14. PIPERACILLIN SODIUM\TAZOBACTAM SODIUM [Suspect]
     Active Substance: PIPERACILLIN SODIUM\TAZOBACTAM SODIUM
     Dosage: 16 GRAM, QD,4 G * 4/DAY
     Route: 042
     Dates: start: 20220530, end: 20220604
  15. VANCOMYCIN HYDROCHLORIDE [Suspect]
     Active Substance: VANCOMYCIN HYDROCHLORIDE
     Indication: Febrile bone marrow aplasia
     Dosage: 1500 MILLIGRAM, LOADING DOSE: 25MG/KG
     Route: 042
     Dates: start: 20220614, end: 20220614
  16. VANCOMYCIN HYDROCHLORIDE [Suspect]
     Active Substance: VANCOMYCIN HYDROCHLORIDE
     Dosage: 2600 MILLIGRAM, Q24H, 20 MG/KG EVERY 12 HOURS
     Route: 042
     Dates: start: 20220614, end: 20220622
  17. FLUCONAZOLE [Suspect]
     Active Substance: FLUCONAZOLE
     Dosage: 200 MILLIGRAM, QD, 8 AM
     Route: 042
     Dates: start: 20220625, end: 20220630
  18. FLUCONAZOLE [Suspect]
     Active Substance: FLUCONAZOLE
     Dosage: 400 MILLIGRAM, QD, 1 BOTTLE/24H TO 8H
     Route: 042
     Dates: start: 20220624, end: 20220624
  19. LINEZOLID [Suspect]
     Active Substance: LINEZOLID
     Indication: Febrile bone marrow aplasia
     Dosage: 1200 MILLIGRAM, QD,600 MG *2/DAY
     Route: 048
     Dates: start: 20220610, end: 20220614
  20. CYCLOSPORINE [Suspect]
     Active Substance: CYCLOSPORINE
     Indication: Prophylaxis against transplant rejection
     Dosage: 212 MILLIGRAM, QD, 105.9 MG *2/DAY
     Route: 042
     Dates: start: 20220521

REACTIONS (3)
  - Coma [Recovered/Resolved]
  - Coma [Recovered/Resolved]
  - Confusional state [Not Recovered/Not Resolved]

NARRATIVE: CASE EVENT DATE: 20220628
